FAERS Safety Report 14760015 (Version 4)
Quarter: 2018Q2

REPORT INFORMATION
  Report Type: Spontaneous
  Country: CZ (occurrence: CZ)
  Receive Date: 20180413
  Receipt Date: 20180521
  Transmission Date: 20180711
  Serious: Yes (Death, Other)
  Sender: FDA-Public Use
  Company Number: CZ-B.I. PHARMACEUTICALS,INC./RIDGEFIELD-2018-BI-019504

PATIENT
  Age: 77 Year
  Sex: Female

DRUGS (3)
  1. GILOTRIF [Suspect]
     Active Substance: AFATINIB
     Indication: NON-SMALL CELL LUNG CANCER
     Route: 048
     Dates: start: 201509
  2. GILOTRIF [Suspect]
     Active Substance: AFATINIB
     Route: 048
     Dates: end: 201609
  3. MEDROL [Concomitant]
     Active Substance: METHYLPREDNISOLONE
     Indication: RHEUMATOID ARTHRITIS
     Route: 065

REACTIONS (11)
  - Deep vein thrombosis [Unknown]
  - Pleural effusion [Unknown]
  - Dermatitis acneiform [Unknown]
  - Stomatitis [Unknown]
  - Weight decreased [Unknown]
  - Dyspnoea [Unknown]
  - Pain [Unknown]
  - Malignant neoplasm progression [Fatal]
  - Malignant neoplasm progression [Unknown]
  - Metastases to bone [Unknown]
  - Diarrhoea [Unknown]

NARRATIVE: CASE EVENT DATE: 2015
